FAERS Safety Report 15917141 (Version 1)
Quarter: 2019Q1

REPORT INFORMATION
  Report Type: Spontaneous
  Country: GB (occurrence: GB)
  Receive Date: 20190205
  Receipt Date: 20190205
  Transmission Date: 20190417
  Serious: Yes (Other)
  Sender: FDA-Public Use
  Company Number: GB-TEVA-2019-GB-1008011

PATIENT
  Age: 82 Year
  Sex: Male
  Weight: 60 kg

DRUGS (13)
  1. GABAPENTIN. [Concomitant]
     Active Substance: GABAPENTIN
     Dosage: 3 DOSAGE FORMS DAILY;
     Dates: start: 20180904, end: 20190107
  2. NUTRITIONAL SUPPLEMENT [Concomitant]
     Active Substance: DIETARY SUPPLEMENT
     Dosage: 2 DOSAGE FORMS DAILY;
     Dates: start: 20181112, end: 20190107
  3. MORPHINE SULFATE. [Concomitant]
     Active Substance: MORPHINE SULFATE
     Dosage: OVER 24HRS VIA SYRINGE DRIVER.
     Dates: start: 20181219, end: 20181229
  4. CARBOCISTEINE [Concomitant]
     Active Substance: CARBOCYSTEINE
     Dosage: 30 ML DAILY;
     Dates: start: 20181227, end: 20190103
  5. GLYCOPYRRONIUM BROMIDE [Concomitant]
     Active Substance: GLYCOPYRRONIUM
     Dosage: OVER 24 HRS VIA SYRINGE DRIVER.
     Dates: start: 20181219, end: 20181229
  6. WATER FOR INJECTION [Concomitant]
     Active Substance: WATER
     Dosage: TO USE IN SYRINGE DRIVER.
     Dates: start: 20181219, end: 20181229
  7. OCTASA [Concomitant]
     Active Substance: MESALAMINE
     Dosage: 6 DOSAGE FORMS DAILY;
     Dates: start: 20180214, end: 20190107
  8. PHENOXYMETHYLPENICILLIN [Suspect]
     Active Substance: PENICILLIN V
     Dosage: 125MG/5ML
     Dates: start: 20181228
  9. AZATHIOPRINE. [Concomitant]
     Active Substance: AZATHIOPRINE
     Dosage: 2 DOSAGE FORMS DAILY;
     Dates: start: 20171215, end: 20190107
  10. BENDROFLUMETHIAZIDE [Concomitant]
     Active Substance: BENDROFLUMETHIAZIDE
     Dosage: 1 DOSAGE FORMS DAILY; EACH MORNING.
     Dates: start: 20171215, end: 20181221
  11. CETIRIZINE [Concomitant]
     Active Substance: CETIRIZINE HYDROCHLORIDE
     Dosage: 1 DOSAGE FORMS DAILY;
     Dates: start: 20171215, end: 20190107
  12. MIDAZOLAM [Concomitant]
     Active Substance: MIDAZOLAM HYDROCHLORIDE
     Dosage: OVER 24 HRS VIA SYRINGE DRIVER.
     Dates: start: 20181219, end: 20181229
  13. CYCLIZINE [Concomitant]
     Active Substance: CYCLIZINE
     Dosage: OVER 24 HRS VIA SYRINGE DRIVER.
     Dates: start: 20181219, end: 20181229

REACTIONS (1)
  - Hallucination [Unknown]

NARRATIVE: CASE EVENT DATE: 20181228
